FAERS Safety Report 7425800-5 (Version None)
Quarter: 2011Q2

REPORT INFORMATION
  Report Type: 
  Country: None (occurrence: None)
  Receive Date: 20110420
  Receipt Date: 20110414
  Transmission Date: 20111010
  Serious: Yes (Life-Threatening, Hospitalization)
  Sender: FDA-Public Use
  Company Number: GB-PFIZER INC-2011052644

PATIENT
  Age: 88 Year
  Sex: Female

DRUGS (4)
  1. RAMIPRIL [Concomitant]
  2. EXEMESTANE [Suspect]
     Dosage: 25 MG, UNK
     Route: 048
     Dates: end: 20110225
  3. BISACODYL [Concomitant]
  4. OMEPRAZOLE [Concomitant]

REACTIONS (4)
  - PANCREATITIS ACUTE [None]
  - VOMITING [None]
  - ABDOMINAL PAIN UPPER [None]
  - BLOOD AMYLASE INCREASED [None]
